FAERS Safety Report 14874681 (Version 2)
Quarter: 2018Q3

REPORT INFORMATION
  Report Type: Spontaneous
  Country: US (occurrence: US)
  Receive Date: 20180510
  Receipt Date: 20180724
  Transmission Date: 20181010
  Serious: Yes (Other)
  Sender: FDA-Public Use
  Company Number: US-BAYER-2018-086163

PATIENT
  Age: 25 Year
  Sex: Female
  Weight: 100.23 kg

DRUGS (2)
  1. METHOTREXAT [METHOTREXATE] [Suspect]
     Active Substance: METHOTREXATE
  2. MIRENA [Suspect]
     Active Substance: LEVONORGESTREL
     Indication: CONTRACEPTION
     Dosage: 20 MCG/24HR, CONT
     Route: 015
     Dates: start: 20160511, end: 20180425

REACTIONS (3)
  - Ectopic pregnancy with contraceptive device [Unknown]
  - Drug ineffective [None]
  - Genital haemorrhage [None]

NARRATIVE: CASE EVENT DATE: 2018
